FAERS Safety Report 14612217 (Version 10)
Quarter: 2019Q1

REPORT INFORMATION
  Report Type: Spontaneous
  Country: US (occurrence: US)
  Receive Date: 20180308
  Receipt Date: 20190329
  Transmission Date: 20190417
  Serious: Yes (Death, Congenital Anomaly, Other)
  Sender: FDA-Public Use
  Company Number: PHEH2018US008872

PATIENT
  Sex: Female

DRUGS (2)
  1. ZOFRAN [Suspect]
     Active Substance: ONDANSETRON HYDROCHLORIDE
     Indication: FOETAL EXPOSURE DURING PREGNANCY
     Dosage: MOTHER^S DOSE: 4 MG, UNK
     Route: 064
  2. ZOFRAN [Suspect]
     Active Substance: ONDANSETRON HYDROCHLORIDE
     Indication: FOETAL EXPOSURE DURING PREGNANCY
     Route: 064

REACTIONS (26)
  - Atrial septal defect [Unknown]
  - Acute kidney injury [Unknown]
  - Effusion [Unknown]
  - Hypoplastic left heart syndrome [Fatal]
  - Cardiogenic shock [Fatal]
  - Hydronephrosis [Unknown]
  - Respiratory distress [Unknown]
  - Left-to-right cardiac shunt [Unknown]
  - Patent ductus arteriosus [Unknown]
  - Arrhythmia [Unknown]
  - Tricuspid valve incompetence [Unknown]
  - Failure to thrive [Unknown]
  - Pulmonary oedema [Unknown]
  - Hypoxia [Unknown]
  - Injury [Unknown]
  - Heart disease congenital [Unknown]
  - Vesicoureteric reflux [Unknown]
  - Right ventricular dysfunction [Unknown]
  - Ascites [Unknown]
  - Fever neonatal [Unknown]
  - Hypoglycaemia neonatal [Unknown]
  - Gastrooesophageal reflux disease [Unknown]
  - Dyspnoea [Unknown]
  - Aortic valve atresia [Unknown]
  - Foetal exposure during pregnancy [Unknown]
  - Convulsion neonatal [Unknown]
